FAERS Safety Report 20433934 (Version 2)
Quarter: 2022Q2

REPORT INFORMATION
  Report Type: Spontaneous
  Country: US (occurrence: US)
  Receive Date: 20220205
  Receipt Date: 20220415
  Transmission Date: 20220721
  Serious: No
  Sender: FDA-Public Use
  Company Number: US-TEVA-2021-US-1996321

PATIENT
  Age: 66 Year
  Sex: Female

DRUGS (2)
  1. PROAIR HFA [Suspect]
     Active Substance: ALBUTEROL SULFATE
     Route: 065
  2. Ventolin HFA Aero [Concomitant]
     Dosage: 2 PUFFS 4 HRS

REACTIONS (1)
  - Discomfort [Not Recovered/Not Resolved]
